FAERS Safety Report 20518788 (Version 1)
Quarter: 2022Q1

REPORT INFORMATION
  Report Type: Report from Study
  Country: HK (occurrence: HK)
  Receive Date: 20220225
  Receipt Date: 20220225
  Transmission Date: 20220423
  Serious: Yes (Death, Hospitalization)
  Sender: FDA-Public Use
  Company Number: HK-DSJP-DSJ-2022-101220

PATIENT
  Age: 73 Year
  Sex: Male

DRUGS (5)
  1. ENHERTU [Suspect]
     Active Substance: FAM-TRASTUZUMAB DERUXTECAN-NXKI
     Indication: Gastric cancer
     Dosage: 300 MG, ONCE EVERY 3 WK
     Route: 041
     Dates: start: 20211119, end: 20211209
  2. NORVASC [Concomitant]
     Active Substance: AMLODIPINE BESYLATE
     Indication: Hypertension
     Dosage: 10 MG, QD
     Route: 048
     Dates: start: 20210320, end: 20220115
  3. FAMOTIDINE [Concomitant]
     Active Substance: FAMOTIDINE
     Indication: Abdominal discomfort
     Dosage: 20 MG, BID
     Route: 048
     Dates: start: 20210907, end: 20220115
  4. CALCIUM\CHOLECALCIFEROL [Concomitant]
     Active Substance: CALCIUM\CHOLECALCIFEROL
     Indication: Product used for unknown indication
     Dosage: 1 TAB, QD
     Route: 048
     Dates: start: 20200309, end: 20220115
  5. ASPIRIN [Concomitant]
     Active Substance: ASPIRIN
     Indication: Myocardial ischaemia
     Dosage: 80 MG, QD
     Route: 048
     Dates: start: 20210907, end: 20220115

REACTIONS (5)
  - Death [Fatal]
  - Pneumonia [Recovering/Resolving]
  - Thrombocytopenia [Recovering/Resolving]
  - Febrile neutropenia [Recovering/Resolving]
  - Urinary tract infection [Recovered/Resolved]

NARRATIVE: CASE EVENT DATE: 20211129
